FAERS Safety Report 25354193 (Version 2)
Quarter: 2025Q4

REPORT INFORMATION
  Report Type: Spontaneous
  Country: JP (occurrence: JP)
  Receive Date: 20250523
  Receipt Date: 20251202
  Transmission Date: 20260117
  Serious: Yes (Hospitalization, Other)
  Sender: ABBVIE
  Company Number: JP-ABBVIE-6293269

PATIENT
  Age: 57 Year
  Sex: Female
  Weight: 44 kg

DRUGS (10)
  1. RINVOQ [Suspect]
     Active Substance: UPADACITINIB
     Indication: Colitis ulcerative
     Dosage: FORM STRENGTH: 45 MILLIGRAM
     Route: 048
     Dates: start: 20250328, end: 20250412
  2. RINVOQ [Suspect]
     Active Substance: UPADACITINIB
     Indication: Colitis ulcerative
     Route: 048
     Dates: start: 20250617
  3. PREDNISOLONE [Concomitant]
     Active Substance: PREDNISOLONE
     Indication: Product used for unknown indication
     Dosage: STOP DATE: MAY 2025
     Dates: start: 20250531
  4. PREDNISOLONE [Concomitant]
     Active Substance: PREDNISOLONE
     Indication: Product used for unknown indication
     Dosage: STOP DATE: 2025
     Dates: start: 20250614
  5. PREDNISOLONE [Concomitant]
     Active Substance: PREDNISOLONE
     Indication: Product used for unknown indication
     Dosage: DRUG STOP DATE: APR 2025
     Dates: start: 20250414
  6. PREDNISOLONE [Concomitant]
     Active Substance: PREDNISOLONE
     Indication: Product used for unknown indication
     Dosage: STOP DATE: MAY 2025
     Dates: start: 20250519
  7. PREDNISOLONE [Concomitant]
     Active Substance: PREDNISOLONE
     Indication: Product used for unknown indication
     Route: 048
     Dates: start: 20250621
  8. PREDNISOLONE [Concomitant]
     Active Substance: PREDNISOLONE
     Indication: Product used for unknown indication
     Dosage: STOP DATE: 2025
     Dates: start: 20250421
  9. PREDNISOLONE [Concomitant]
     Active Substance: PREDNISOLONE
     Indication: Product used for unknown indication
     Dosage: STOP DATE: MAY 2025
     Dates: start: 20250511
  10. PREDNISOLONE [Concomitant]
     Active Substance: PREDNISOLONE
     Indication: Product used for unknown indication
     Dosage: STOP DATE: MAY 2025
     Dates: start: 20250504

REACTIONS (11)
  - Meningitis listeria [Recovered/Resolved]
  - Pyoderma gangrenosum [Unknown]
  - Immunosuppression [Unknown]
  - Colitis ulcerative [Recovering/Resolving]
  - Dysplasia [Unknown]
  - Scab [Unknown]
  - Rash [Unknown]
  - Ulcer [Unknown]
  - Movement disorder [Unknown]
  - Rash [Unknown]
  - Pyrexia [Unknown]

NARRATIVE: CASE EVENT DATE: 20250101
